FAERS Safety Report 19356422 (Version 1)
Quarter: 2021Q2

REPORT INFORMATION
  Report Type: Spontaneous
  Country: US (occurrence: US)
  Receive Date: 20210601
  Receipt Date: 20210601
  Transmission Date: 20210717
  Serious: No
  Sender: FDA-Public Use
  Company Number: None

PATIENT
  Age: 71 Year
  Sex: Male

DRUGS (8)
  1. TACROLIMUS 1MG [Suspect]
     Active Substance: TACROLIMUS
     Indication: LUNG TRANSPLANT
     Route: 048
     Dates: start: 2012
  2. TACROLIMUS 0.5MG [Suspect]
     Active Substance: TACROLIMUS
     Indication: LUNG TRANSPLANT
     Route: 048
     Dates: start: 2012
  3. NORTRIPTYLINE 25MG [Concomitant]
     Active Substance: NORTRIPTYLINE
  4. PREDNISONE 5MG [Concomitant]
     Active Substance: PREDNISONE
  5. VALACYCLOVIR [Suspect]
     Active Substance: VALACYCLOVIR HYDROCHLORIDE
  6. AZATHIOPRINE 50MG [Concomitant]
     Active Substance: AZATHIOPRINE
  7. SMX/TMP 400/80MG [Concomitant]
  8. OMEPRAZOLE 20MG [Concomitant]
     Active Substance: OMEPRAZOLE

REACTIONS (1)
  - Retinal vein occlusion [None]
